FAERS Safety Report 8833030 (Version 1)
Quarter: 2012Q4

REPORT INFORMATION
  Report Type: 
  Country: US (occurrence: US)
  Receive Date: 20121010
  Receipt Date: 20121010
  Transmission Date: 20130627
  Serious: Yes (Hospitalization)
  Sender: FDA-Public Use
  Company Number: US-PFIZER INC-2012246948

PATIENT
  Age: 57 Year
  Sex: Female
  Weight: 48.07 kg

DRUGS (1)
  1. ZOLOFT [Suspect]
     Indication: DEPRESSION
     Dosage: 25 mg, daily
     Dates: start: 2010

REACTIONS (1)
  - Cardiac disorder [Unknown]
